FAERS Safety Report 10128069 (Version 2)
Quarter: 2014Q2

REPORT INFORMATION
  Report Type: Spontaneous
  Country: JP (occurrence: JP)
  Receive Date: 20140428
  Receipt Date: 20140428
  Transmission Date: 20141212
  Serious: Yes (Other)
  Sender: FDA-Public Use
  Company Number: JP-DSJP-DSJ-2014-105876AA

PATIENT
  Sex: 0

DRUGS (6)
  1. OLMETEC [Suspect]
     Indication: HYPERTENSION
     Dosage: 10MG/?
     Route: 048
     Dates: start: 20130807, end: 201403
  2. OLMETEC [Suspect]
     Dosage: 10MG/?
     Route: 048
     Dates: start: 20140411
  3. AMLODIPINE BESILATE [Suspect]
     Dosage: UNK
     Route: 065
  4. TAKEPRON [Suspect]
     Dosage: ??
     Route: 065
     Dates: start: 20130807
  5. GASMOTIN [Suspect]
     Dosage: ??
     Route: 065
     Dates: start: 20130807
  6. MYSLEE [Concomitant]
     Dosage: UNK
     Route: 065

REACTIONS (1)
  - Hepatic function abnormal [Recovered/Resolved]
